FAERS Safety Report 4481046-4 (Version None)
Quarter: 2004Q4

REPORT INFORMATION
  Report Type: 
  Country: None (occurrence: None)
  Receive Date: 20041019
  Receipt Date: 20041007
  Transmission Date: 20050328
  Serious: Yes (Other)
  Sender: FDA-Public Use
  Company Number: HQWYE648708OCT04

PATIENT
  Age: 23 Year

DRUGS (2)
  1. ALAVERT [Suspect]
     Dosage: ORAL
     Route: 048
  2. ZITHROMAX [Suspect]
     Dosage: ORAL
     Route: 048

REACTIONS (1)
  - ARRHYTHMIA [None]
